FAERS Safety Report 11299452 (Version 1)
Quarter: 2015Q3

REPORT INFORMATION
  Report Type: Spontaneous
  Country: US (occurrence: US)
  Receive Date: 20150722
  Receipt Date: 20150722
  Transmission Date: 20151125
  Serious: No
  Sender: FDA-Public Use
  Company Number: US-ELI_LILLY_AND_COMPANY-US201211006796

PATIENT
  Sex: Female

DRUGS (2)
  1. EVISTA [Suspect]
     Active Substance: RALOXIFENE HYDROCHLORIDE
     Indication: OSTEOPOROSIS
     Dosage: UNK MG, UNK
     Dates: start: 2005
  2. EVISTA [Suspect]
     Active Substance: RALOXIFENE HYDROCHLORIDE
     Dosage: 60 MG, QD
     Dates: start: 20121118

REACTIONS (6)
  - Bone density abnormal [Unknown]
  - Vaginal haemorrhage [Unknown]
  - Varicose vein [Unknown]
  - Hypochondriasis [Unknown]
  - Weight increased [Unknown]
  - Blood cholesterol increased [Unknown]
